FAERS Safety Report 4615432-6 (Version None)
Quarter: 2005Q1

REPORT INFORMATION
  Report Type: 
  Country: None (occurrence: None)
  Receive Date: 20050317
  Receipt Date: 20050308
  Transmission Date: 20050727
  Serious: Yes (Hospitalization)
  Sender: FDA-Public Use
  Company Number: 2005043046

PATIENT
  Age: 60 Year
  Sex: Male

DRUGS (3)
  1. TAHOR (ATORVASTATIN) [Suspect]
     Indication: PROPHYLAXIS
     Dosage: 10 MG (10 MG, 1 IN 1 D)
  2. OFLOXACIN [Suspect]
     Indication: CORNEAL INFECTION
     Dosage: 400 MG
     Dates: start: 20040901, end: 20040901
  3. OFLOXACIN [Concomitant]

REACTIONS (6)
  - CORNEAL INFECTION [None]
  - EYE INFECTION BACTERIAL [None]
  - FALL [None]
  - GAIT DISTURBANCE [None]
  - INJURY CORNEAL [None]
  - TENDON RUPTURE [None]
